FAERS Safety Report 15347771 (Version 1)
Quarter: 2018Q3

REPORT INFORMATION
  Report Type: Spontaneous
  Country: US (occurrence: US)
  Receive Date: 20180829
  Receipt Date: 20180829
  Transmission Date: 20181010
  Serious: No
  Sender: FDA-Public Use
  Company Number: None

PATIENT
  Age: 55 Year
  Sex: Female

DRUGS (1)
  1. GLATOPA [Suspect]
     Active Substance: GLATIRAMER ACETATE
     Dates: start: 20171201, end: 20181031

REACTIONS (4)
  - Musculoskeletal disorder [None]
  - Feeling abnormal [None]
  - Sensory disturbance [None]
  - Skin tightness [None]

NARRATIVE: CASE EVENT DATE: 20180827
